FAERS Safety Report 21438898 (Version 1)
Quarter: 2022Q4

REPORT INFORMATION
  Report Type: Report from Study
  Country: CA (occurrence: CA)
  Receive Date: 20221011
  Receipt Date: 20221011
  Transmission Date: 20230112
  Serious: Yes (Hospitalization)
  Sender: FDA-Public Use
  Company Number: CA-ABBVIE-4148140

PATIENT
  Age: 25 Year
  Sex: Female

DRUGS (1)
  1. HUMIRA [Suspect]
     Active Substance: ADALIMUMAB
     Indication: Crohn^s disease
     Route: 058
     Dates: start: 20101210

REACTIONS (5)
  - Intestinal obstruction [Unknown]
  - Blood iron decreased [Unknown]
  - Asthenia [Unknown]
  - Anal fistula [Unknown]
  - Stress [Unknown]

NARRATIVE: CASE EVENT DATE: 20220501
